FAERS Safety Report 4890321-0 (Version None)
Quarter: 2006Q1

REPORT INFORMATION
  Report Type: 
  Country: None (occurrence: None)
  Receive Date: 20060124
  Receipt Date: 20060117
  Transmission Date: 20060701
  Serious: Yes (Hospitalization, Other)
  Sender: FDA-Public Use
  Company Number: US-MERCK-0601USA02282

PATIENT
  Age: 52 Year
  Sex: Male

DRUGS (6)
  1. VIOXX [Suspect]
     Route: 048
  2. INSULIN [Concomitant]
     Route: 065
  3. HYDRODIURIL [Concomitant]
     Route: 065
  4. VALSARTAN [Concomitant]
     Route: 065
  5. RANITIDINE [Concomitant]
     Route: 065
  6. COUMADIN [Concomitant]
     Route: 065

REACTIONS (8)
  - ABDOMINAL PAIN UPPER [None]
  - DIABETES MELLITUS INSULIN-DEPENDENT [None]
  - DRUG ABUSER [None]
  - HEPATITIS C [None]
  - HYPERTENSION [None]
  - LYMPHADENOPATHY MEDIASTINAL [None]
  - PEPTIC ULCER [None]
  - PULMONARY EMBOLISM [None]
